FAERS Safety Report 7404808-X (Version None)
Quarter: 2011Q2

REPORT INFORMATION
  Report Type: 
  Country: None (occurrence: None)
  Receive Date: 20110411
  Receipt Date: 20101109
  Transmission Date: 20111010
  Serious: Yes (Other)
  Sender: FDA-Public Use
  Company Number: US-BAYER-201030229NA

PATIENT
  Sex: Female
  Weight: 77.098 kg

DRUGS (6)
  1. YASMIN [Suspect]
     Indication: CONTRACEPTION
     Dosage: UNK UNK, QD
     Route: 048
     Dates: start: 20070201, end: 20080601
  2. YASMIN [Suspect]
     Indication: ACNE
  3. OCELLA [Suspect]
     Indication: CONTRACEPTION
     Dosage: UNK UNK, QD
     Route: 048
     Dates: start: 20080701, end: 20080901
  4. OCELLA [Suspect]
     Indication: ACNE
     Dosage: UNK, QD
     Route: 048
     Dates: start: 20090301, end: 20100501
  5. YAZ [Suspect]
     Indication: PRODUCT USED FOR UNKNOWN INDICATION
     Dosage: UNK
     Route: 048
     Dates: start: 20070201
  6. ALEVE [Concomitant]

REACTIONS (7)
  - ABDOMINAL PAIN [None]
  - CHOLELITHIASIS [None]
  - CHOLECYSTITIS [None]
  - VOMITING [None]
  - NAUSEA [None]
  - WEIGHT INCREASED [None]
  - GALLBLADDER DISORDER [None]
